FAERS Safety Report 16635363 (Version 2)
Quarter: 2019Q4

REPORT INFORMATION
  Report Type: Other
  Country: GB (occurrence: IT)
  Receive Date: 20190726
  Receipt Date: 20191202
  Transmission Date: 20200122
  Serious: Yes (Hospitalization, Other)
  Sender: FDA-Public Use
  Company Number: IT-ASTELLAS-2019US029668

PATIENT
  Age: 70 Year
  Sex: Male

DRUGS (3)
  1. DOCETAXEL. [Suspect]
     Active Substance: DOCETAXEL
     Indication: NON-SMALL CELL LUNG CANCER
     Dosage: UNK UNK, UNKNOWN FREQ.(MULTIPLE CYCLES)
     Route: 065
     Dates: start: 2005
  2. CARBOPLATIN. [Suspect]
     Active Substance: CARBOPLATIN
     Indication: NON-SMALL CELL LUNG CANCER
     Dosage: UNK UNK, UNKNOWN FREQ.(MULTIPLE CYCLES)
     Route: 065
     Dates: start: 2005
  3. ERLOTINIB [Suspect]
     Active Substance: ERLOTINIB
     Indication: NON-SMALL CELL LUNG CANCER
     Dosage: UNK UNK, UNKNOWN FREQ. (MULTIPLE CYCLES)
     Route: 065
     Dates: start: 2005

REACTIONS (6)
  - Left ventricular dysfunction [Recovering/Resolving]
  - Bundle branch block left [Recovering/Resolving]
  - Congestive cardiomyopathy [Recovering/Resolving]
  - Coronary artery disease [Recovering/Resolving]
  - Cardiac failure chronic [Recovering/Resolving]
  - Mitral valve incompetence [Recovering/Resolving]

NARRATIVE: CASE EVENT DATE: 2009
